FAERS Safety Report 8327090-8 (Version None)
Quarter: 2012Q2

REPORT INFORMATION
  Report Type: 
  Country: None (occurrence: None)
  Receive Date: 20120501
  Receipt Date: 20120425
  Transmission Date: 20120825
  Serious: Yes (Hospitalization)
  Sender: FDA-Public Use
  Company Number: BE-MERCK-1203BEL00006

PATIENT
  Age: 56 Year
  Sex: Female

DRUGS (1)
  1. CANCIDAS [Suspect]
     Indication: URINARY TRACT INFECTION FUNGAL
     Route: 041

REACTIONS (3)
  - RENAL ABSCESS [None]
  - SYSTEMIC CANDIDA [None]
  - DRUG INEFFECTIVE [None]
